FAERS Safety Report 9189361 (Version 1)
Quarter: 2013Q1

REPORT INFORMATION
  Report Type: Spontaneous
  Country: US (occurrence: US)
  Receive Date: 20130326
  Receipt Date: 20130326
  Transmission Date: 20140127
  Serious: Yes (Other)
  Sender: FDA-Public Use
  Company Number: PHEH2013US006623

PATIENT
  Sex: Male

DRUGS (17)
  1. FOCALIN XR [Suspect]
     Dosage: 30 MG IN MORNING AND 15 MG AFTERNOON
     Route: 048
  2. ADDERALL [Suspect]
     Dosage: UNK UKN, UNK
  3. CALOCETSOL [Concomitant]
     Dosage: UNK UKN, UNK
  4. VALPROIC ACID [Concomitant]
     Dosage: UNK UKN, UNK
  5. RISPERDAL [Concomitant]
     Dosage: UNK UKN, UNK
  6. LAMMITTAL [Concomitant]
     Dosage: UNK UKN, UNK
  7. CITALOPRAM [Concomitant]
     Dosage: UNK UKN, UNK
  8. LANZOPRAL [Concomitant]
     Dosage: UNK UKN, UNK
  9. ZANTAC [Concomitant]
     Dosage: UNK UKN, UNK
  10. CEFDINIR [Concomitant]
     Dosage: UNK UKN, UNK
  11. ASPIRIN [Concomitant]
     Dosage: UNK UKN, UNK
  12. MELATONIN [Concomitant]
     Dosage: UNK UKN, UNK
  13. ZYRTEC [Concomitant]
     Dosage: UNK UKN, UNK
  14. TACLONEX [Concomitant]
     Dosage: UNK UKN, UNK
  15. FLONASE [Concomitant]
     Dosage: UNK UKN, UNK
  16. OCEAN MIST [Concomitant]
     Dosage: UNK UKN, UNK
  17. PREVIDENT [Concomitant]
     Dosage: UNK UKN, UNK

REACTIONS (1)
  - Epistaxis [Unknown]
